FAERS Safety Report 6719451-5 (Version None)
Quarter: 2010Q2

REPORT INFORMATION
  Report Type: 
  Country: None (occurrence: None)
  Receive Date: 20100510
  Receipt Date: 20100510
  Transmission Date: 20101027
  Serious: Yes (Hospitalization, Other)
  Sender: FDA-Public Use
  Company Number: None

PATIENT
  Sex: Female
  Weight: 66.2252 kg

DRUGS (3)
  1. FOSAMAX [Suspect]
     Indication: OSTEOPENIA
     Dosage: ONE TABLET WEEKLY PO
     Route: 048
     Dates: start: 19991230, end: 20091012
  2. FOSAMAX [Suspect]
     Indication: OSTEOPOROSIS
     Dosage: ONE TABLET WEEKLY PO
     Route: 048
     Dates: start: 19991230, end: 20091012
  3. ARIMIDEX [Suspect]
     Indication: BREAST CANCER
     Dosage: ONE TABLET DAILY PO
     Route: 048
     Dates: start: 19980710, end: 20071212

REACTIONS (3)
  - FALL [None]
  - FEMUR FRACTURE [None]
  - OSTEOPENIA [None]
